FAERS Safety Report 15617154 (Version 1)
Quarter: 2018Q4

REPORT INFORMATION
  Report Type: Spontaneous
  Country: US (occurrence: US)
  Receive Date: 20181109
  Receipt Date: 20181109
  Transmission Date: 20190205
  Serious: Yes (Disabling)
  Sender: FDA-Public Use
  Company Number: None

PATIENT
  Age: 69 Year
  Sex: Female
  Weight: 50.8 kg

DRUGS (15)
  1. VITAMIN B6 [Concomitant]
     Active Substance: PYRIDOXINE HYDROCHLORIDE
  2. VITAMIN D3 [Concomitant]
     Active Substance: CHOLECALCIFEROL
  3. CAL-MAG-MAX [Concomitant]
  4. FOLIC ACID. [Concomitant]
     Active Substance: FOLIC ACID
  5. CRANACTIN [Concomitant]
     Active Substance: DIETARY SUPPLEMENT
  6. ALPRAZOLAM. [Concomitant]
     Active Substance: ALPRAZOLAM
  7. MILK OF MAGNESIA [Concomitant]
     Active Substance: MAGNESIUM HYDROXIDE
  8. TRAZODONE [Concomitant]
     Active Substance: TRAZODONE HYDROCHLORIDE
  9. HYOSCAMINE [Concomitant]
  10. TYLENOL [Concomitant]
     Active Substance: ACETAMINOPHEN
  11. EXCEDRIN TENSION HEADACHE [Concomitant]
     Active Substance: ACETAMINOPHEN\CAFFEINE
  12. PREDNISONE. [Concomitant]
     Active Substance: PREDNISONE
  13. ZOLOFT [Concomitant]
     Active Substance: SERTRALINE HYDROCHLORIDE
  14. LEXISCAN [Suspect]
     Active Substance: REGADENOSON
  15. GRAPE SEED OIL [Concomitant]

REACTIONS (10)
  - Chest pain [None]
  - Dry eye [None]
  - Asthenia [None]
  - Tremor [None]
  - Cardiac procedure complication [None]
  - Hyperhidrosis [None]
  - Fatigue [None]
  - Chills [None]
  - Pain in extremity [None]
  - Quality of life decreased [None]

NARRATIVE: CASE EVENT DATE: 20180721
